FAERS Safety Report 9205977 (Version 2)
Quarter: 2013Q2

REPORT INFORMATION
  Report Type: Report from Study
  Country: CA (occurrence: CA)
  Receive Date: 20130403
  Receipt Date: 20130520
  Transmission Date: 20140414
  Serious: Yes (Hospitalization, Other)
  Sender: FDA-Public Use
  Company Number: CA-JNJFOC-20130316362

PATIENT
  Age: 36 Year
  Sex: Male
  Weight: 92 kg

DRUGS (3)
  1. REMICADE [Suspect]
     Indication: COLITIS ULCERATIVE
     Dosage: EIGHTH INFUSION AT THE TIME OF THE REPORT
     Route: 042
     Dates: start: 20130323
  2. REMICADE [Suspect]
     Indication: COLITIS ULCERATIVE
     Dosage: EIGHTH INFUSION AT THE TIME OF THE REPORT
     Route: 042
     Dates: start: 20120428
  3. DIAMICRON [Concomitant]
     Route: 065

REACTIONS (4)
  - Multiple fractures [Not Recovered/Not Resolved]
  - Pain [Unknown]
  - Sensory loss [Not Recovered/Not Resolved]
  - Laceration [Not Recovered/Not Resolved]
